FAERS Safety Report 24785608 (Version 1)
Quarter: 2024Q4

REPORT INFORMATION
  Report Type: Spontaneous
  Country: US (occurrence: US)
  Receive Date: 20241228
  Receipt Date: 20241228
  Transmission Date: 20250114
  Serious: No
  Sender: EYWA PHARMA INC.
  Company Number: US-Eywa Pharma Inc.-2167943

PATIENT

DRUGS (1)
  1. BACLOFEN [Suspect]
     Active Substance: BACLOFEN
     Indication: Analgesic therapy

REACTIONS (4)
  - Weight decreased [Unknown]
  - Insomnia [Unknown]
  - Feeling abnormal [Unknown]
  - Decreased appetite [Unknown]
